FAERS Safety Report 21312240 (Version 1)
Quarter: 2022Q3

REPORT INFORMATION
  Report Type: Spontaneous
  Country: US (occurrence: None)
  Receive Date: 20220909
  Receipt Date: 20220909
  Transmission Date: 20221027
  Serious: No
  Sender: FDA-Public Use
  Company Number: US-ARIS GLOBAL-202205-0810

PATIENT
  Sex: Female
  Weight: 100 kg

DRUGS (10)
  1. OXERVATE [Suspect]
     Active Substance: CENEGERMIN-BKBJ
     Indication: Neurotrophic keratopathy
     Route: 047
     Dates: start: 20220427
  2. ZIRGAN [Concomitant]
     Active Substance: GANCICLOVIR
  3. VALACYCLOVIR [Concomitant]
     Active Substance: VALACYCLOVIR HYDROCHLORIDE
  4. PREDNISOLONE-NEPAFENAC [Concomitant]
  5. VITAMINS [Concomitant]
     Active Substance: VITAMINS
  6. HYDROCHLOROTHIAZIDE\TRIAMTERENE [Concomitant]
     Active Substance: HYDROCHLOROTHIAZIDE\TRIAMTERENE
     Dosage: 37.5-25 MG
  7. METRONIDAZOLE [Concomitant]
     Active Substance: METRONIDAZOLE
  8. LATANOPROST [Concomitant]
     Active Substance: LATANOPROST
  9. IBUPROFEN [Concomitant]
     Active Substance: IBUPROFEN
  10. PLENVU [Concomitant]
     Active Substance: ASCORBIC ACID\POLYETHYLENE GLYCOL 3350\POTASSIUM CHLORIDE\SODIUM ASCORBATE\SODIUM CHLORIDE\SODIUM SU
     Dosage: 140-9-5.2 G

REACTIONS (1)
  - Eye pain [Unknown]
